FAERS Safety Report 15100753 (Version 2)
Quarter: 2022Q2

REPORT INFORMATION
  Report Type: Report from Study
  Country: US (occurrence: US)
  Receive Date: 20180703
  Receipt Date: 20220607
  Transmission Date: 20220721
  Serious: Yes (Death, Hospitalization, Other)
  Sender: FDA-Public Use
  Company Number: US-AMGEN-USACT2018064618

PATIENT
  Age: 91 Year
  Sex: Male
  Weight: 74.4 kg

DRUGS (22)
  1. TALIMOGENE LAHERPAREPVEC [Suspect]
     Active Substance: TALIMOGENE LAHERPAREPVEC
     Indication: Neuroendocrine carcinoma of the skin
     Dosage: 10^6 PFU/ML, ON DAY 1 (CYCLE 1, CYCLE = 21)
     Route: 036
     Dates: start: 20171002
  2. TALIMOGENE LAHERPAREPVEC [Suspect]
     Active Substance: TALIMOGENE LAHERPAREPVEC
     Dosage: 10^8 PFU/ML, (ON DAY 1) UNK (CYCLE 2-5, CYCLE =14 DAYS)
     Route: 036
  3. TALIMOGENE LAHERPAREPVEC [Suspect]
     Active Substance: TALIMOGENE LAHERPAREPVEC
     Dosage: 10^8 PFU/ML ON DAY 1 (CYCLE 6+CYCLE=14 DAYS)
     Route: 036
     Dates: end: 20180129
  4. NIVOLUMAB [Suspect]
     Active Substance: NIVOLUMAB
     Indication: Neuroendocrine carcinoma of the skin
     Dosage: 3 MG/KG, UNK (OVER 60 MINUTES ON DAY 1)
     Route: 042
     Dates: start: 20171002
  5. NIVOLUMAB [Suspect]
     Active Substance: NIVOLUMAB
     Dosage: 3 MG/KG/DAY, UNK
     Route: 042
     Dates: end: 20180129
  6. ACETAMINOPHEN [Concomitant]
     Active Substance: ACETAMINOPHEN
     Dosage: UNK
  7. DIPHENHYDRAMINE [Concomitant]
     Active Substance: DIPHENHYDRAMINE
     Dosage: UNK
  8. FAMOTIDINE [Concomitant]
     Active Substance: FAMOTIDINE
     Dosage: UNK
  9. INDOMETHACIN [Concomitant]
     Active Substance: INDOMETHACIN
     Dosage: UNK
  10. ASPIRIN [Concomitant]
     Active Substance: ASPIRIN
     Dosage: UNK
  11. ATORVASTATIN [Concomitant]
     Active Substance: ATORVASTATIN
     Dosage: UNK
  12. CARVEDILOL [Concomitant]
     Active Substance: CARVEDILOL
     Dosage: UNK
  13. CLOPIDOGREL [Concomitant]
     Active Substance: CLOPIDOGREL BISULFATE
     Dosage: UNK
  14. COENZYME Q10 [Concomitant]
     Active Substance: DIETARY SUPPLEMENT\UBIDECARENONE
     Dosage: UNK
  15. DIGOXIN [Concomitant]
     Active Substance: DIGOXIN
     Dosage: UNK
  16. FINASTERIDE [Concomitant]
     Active Substance: FINASTERIDE
     Dosage: UNK
  17. LASIX [Concomitant]
     Active Substance: FUROSEMIDE
     Indication: Oedema peripheral
     Dosage: UNK
     Dates: start: 20180217
  18. LASIX [Concomitant]
     Active Substance: FUROSEMIDE
     Dosage: UNK, REDUCED DOSE
     Dates: start: 20180219
  19. POTASSIUM CHLORIDE [Concomitant]
     Active Substance: POTASSIUM CHLORIDE
     Indication: Oedema peripheral
     Dosage: UNK
  20. POTASSIUM CHLORIDE [Concomitant]
     Active Substance: POTASSIUM CHLORIDE
     Dosage: UNK, REDUCED DOSE
     Dates: start: 20180219
  21. PREDNISONE [Concomitant]
     Active Substance: PREDNISONE
     Dosage: UNK UNK, DAILY
     Route: 048
     Dates: start: 20180219
  22. TAMSULOSIN [Concomitant]
     Active Substance: TAMSULOSIN
     Dosage: UNK

REACTIONS (7)
  - Gastrointestinal haemorrhage [Fatal]
  - Cardiac failure congestive [Fatal]
  - Muscular weakness [Recovering/Resolving]
  - Hepatitis [Unknown]
  - Autoimmune disorder [Recovered/Resolved]
  - Deep vein thrombosis [Unknown]
  - Mental status changes [Unknown]

NARRATIVE: CASE EVENT DATE: 20180201
